FAERS Safety Report 6610988-6 (Version None)
Quarter: 2010Q1

REPORT INFORMATION
  Report Type: 
  Country: None (occurrence: None)
  Receive Date: 20100302
  Receipt Date: 20100219
  Transmission Date: 20100710
  Serious: Yes (Death)
  Sender: FDA-Public Use
  Company Number: JP-BRISTOL-MYERS SQUIBB COMPANY-14980577

PATIENT
  Age: 72 Year
  Sex: Female

DRUGS (2)
  1. CARBIDOPA + LEVODOPA [Suspect]
     Dosage: 100MG:AUG-04SEP(BID),100MG:05SEP-19NOV(TID)(76 DAYS),400MG:20NOV-27JAN10(69 DAYS),100MG:28JAN10(TID)
     Route: 048
     Dates: start: 20090626
  2. AKINETON [Concomitant]
     Dates: start: 20100128, end: 20100128

REACTIONS (1)
  - NEUROLEPTIC MALIGNANT SYNDROME [None]
